FAERS Safety Report 10062732 (Version 3)
Quarter: 2022Q3

REPORT INFORMATION
  Report Type: Spontaneous
  Country: FR (occurrence: FR)
  Receive Date: 20140407
  Receipt Date: 20220821
  Transmission Date: 20221026
  Serious: Yes (Hospitalization, Other)
  Sender: FDA-Public Use
  Company Number: None

PATIENT
  Age: 82 Year
  Sex: Female

DRUGS (1)
  1. VALACYCLOVIR HYDROCHLORIDE [Suspect]
     Active Substance: VALACYCLOVIR HYDROCHLORIDE
     Indication: Herpes zoster
     Route: 048
     Dates: start: 20140308, end: 20140310

REACTIONS (8)
  - Renal tubular necrosis [Recovered/Resolved]
  - Encephalopathy [Recovered/Resolved]
  - Coma [Recovered/Resolved]
  - Confusional state [Recovering/Resolving]
  - Hallucination [Recovering/Resolving]
  - Dyskinesia [Recovering/Resolving]
  - Inflammation [Recovering/Resolving]
  - Hypotonia [Recovering/Resolving]

NARRATIVE: CASE EVENT DATE: 20140309
